FAERS Safety Report 17368036 (Version 1)
Quarter: 2020Q1

REPORT INFORMATION
  Report Type: Report from Study
  Country: US (occurrence: US)
  Receive Date: 20200204
  Receipt Date: 20200204
  Transmission Date: 20200409
  Serious: Yes (Death, Other)
  Sender: FDA-Public Use
  Company Number: NVSC2020US028407

PATIENT
  Age: 42 Year
  Sex: Female
  Weight: 88.1 kg

DRUGS (1)
  1. LAMPRENE [Suspect]
     Active Substance: CLOFAZIMINE
     Indication: MYCOBACTERIUM ABSCESSUS INFECTION
     Dosage: 100 MG, QD
     Route: 048
     Dates: start: 20170613, end: 20200103

REACTIONS (9)
  - Mental status changes [Unknown]
  - Jaundice [Fatal]
  - Coagulation test abnormal [Fatal]
  - Peritonitis bacterial [Unknown]
  - Acute kidney injury [Unknown]
  - Thrombocytopenia [Unknown]
  - Hepatorenal failure [Fatal]
  - Ascites [Fatal]
  - Acute hepatic failure [Fatal]

NARRATIVE: CASE EVENT DATE: 20200104
